FAERS Safety Report 9118737 (Version 2)
Quarter: 2013Q1

REPORT INFORMATION
  Report Type: Spontaneous
  Country: FR (occurrence: FR)
  Receive Date: 20130226
  Receipt Date: 20130301
  Transmission Date: 20140127
  Serious: Yes (Hospitalization)
  Sender: FDA-Public Use
  Company Number: FR-PFIZER INC-FR-WYE-H07959809

PATIENT
  Age: 83 Year
  Sex: Male

DRUGS (12)
  1. CORDARONE [Suspect]
     Indication: ARRHYTHMIA
     Dosage: 200 MG, 1X/DAY
     Route: 048
     Dates: end: 20080519
  2. MONO-TILDIEM [Interacting]
     Indication: HYPERTENSION
     Dosage: 300 MG, 1X/DAY
     Route: 048
     Dates: end: 20080520
  3. ZOXAN [Suspect]
     Indication: PROSTATIC ADENOMA
     Dosage: 4 MG, 1X/DAY
     Route: 048
     Dates: end: 20080519
  4. RILMENIDINE [Suspect]
     Indication: HYPERTENSION
     Dosage: 1 MG, 1X/DAY
     Route: 048
     Dates: end: 20080521
  5. NICERGOLINE [Suspect]
     Indication: MENTAL IMPAIRMENT
     Dosage: 3 DF, 1X/DAY
     Route: 048
     Dates: end: 20080519
  6. FORTZAAR [Suspect]
     Indication: HYPERTENSION
     Dosage: 1 DF, 1X/DAY
     Route: 048
     Dates: end: 20080519
  7. KARDEGIC [Concomitant]
     Dosage: UNK
     Route: 065
  8. ALLOPURINOL [Concomitant]
     Dosage: UNK
     Route: 048
  9. TAHOR [Concomitant]
     Dosage: UNK
     Route: 048
  10. BROMAZEPAM [Concomitant]
     Indication: ANXIETY
     Dosage: 1 DF, DAILY
     Route: 048
     Dates: end: 20080528
  11. MONICOR L.P. [Concomitant]
     Indication: PROPHYLAXIS
     Dosage: 40 MG, 2X/DAY
     Route: 048
     Dates: end: 20080519
  12. GARDENAL [Concomitant]
     Dosage: UNK
     Route: 065

REACTIONS (4)
  - Drug interaction [Recovered/Resolved]
  - Bradycardia [Recovered/Resolved]
  - Confusional state [Recovered/Resolved]
  - Balance disorder [Recovered/Resolved]
